FAERS Safety Report 6264682-4 (Version None)
Quarter: 2009Q3

REPORT INFORMATION
  Report Type: 
  Country: None (occurrence: None)
  Receive Date: 20090710
  Receipt Date: 20090618
  Transmission Date: 20100115
  Serious: Yes (Hospitalization)
  Sender: FDA-Public Use
  Company Number: ES-JNJCH-2009018305

PATIENT
  Age: 32 Year
  Sex: Male

DRUGS (1)
  1. CETIRIZINE HYDROCHLORIDE [Suspect]
     Indication: RHINITIS
     Dosage: TEXT:10MG
     Route: 065

REACTIONS (1)
  - CHOLESTASIS [None]
